FAERS Safety Report 16245017 (Version 1)
Quarter: 2019Q2

REPORT INFORMATION
  Report Type: Spontaneous
  Country: FR (occurrence: FR)
  Receive Date: 20190426
  Receipt Date: 20190426
  Transmission Date: 20190711
  Serious: Yes (Other)
  Sender: FDA-Public Use
  Company Number: PHHY2019FR086807

PATIENT
  Sex: Female

DRUGS (6)
  1. ZOLEDRONIC ACID [Suspect]
     Active Substance: ZOLEDRONIC ACID
     Indication: HYPERPARATHYROIDISM
     Dosage: UNK
     Route: 042
  2. ZOLEDRONIC ACID [Suspect]
     Active Substance: ZOLEDRONIC ACID
     Indication: BARTTER^S SYNDROME
  3. PAMIDRONATE [Suspect]
     Active Substance: PAMIDRONATE DISODIUM
     Indication: BARTTER^S SYNDROME
  4. CINACALCET. [Suspect]
     Active Substance: CINACALCET
     Indication: HYPERPARATHYROIDISM
     Dosage: 30 MG, QD
     Route: 065
  5. PAMIDRONATE [Suspect]
     Active Substance: PAMIDRONATE DISODIUM
     Indication: HYPERPARATHYROIDISM
     Dosage: UNK
     Route: 042
  6. CINACALCET. [Suspect]
     Active Substance: CINACALCET
     Indication: BARTTER^S SYNDROME

REACTIONS (3)
  - Off label use [Unknown]
  - Drug ineffective [Unknown]
  - Hypocalcaemia [Unknown]
